FAERS Safety Report 6360330-3 (Version None)
Quarter: 2009Q3

REPORT INFORMATION
  Report Type: 
  Country: None (occurrence: None)
  Receive Date: 20090917
  Receipt Date: 20090908
  Transmission Date: 20100115
  Serious: Yes (Other)
  Sender: FDA-Public Use
  Company Number: PHHY2009AU38334

PATIENT
  Age: 67 Year
  Sex: Female

DRUGS (2)
  1. CYCLOSPORINE [Suspect]
     Indication: RENAL TRANSPLANT
  2. SIROLIMUS [Concomitant]
     Indication: RENAL TRANSPLANT
     Dosage: UNK

REACTIONS (2)
  - DIABETES MELLITUS [None]
  - SKIN CANCER [None]
